FAERS Safety Report 25809927 (Version 3)
Quarter: 2025Q4

REPORT INFORMATION
  Report Type: Report from Study
  Country: US (occurrence: US)
  Receive Date: 20250917
  Receipt Date: 20251230
  Transmission Date: 20260118
  Serious: No
  Sender: TRAVERE THERAPEUTICS
  Company Number: US-TRAVERE-2025TVT01168

PATIENT
  Age: 79 Year
  Sex: Male
  Weight: 95 kg

DRUGS (13)
  1. FILSPARI [Suspect]
     Active Substance: SPARSENTAN
     Indication: IgA nephropathy
     Route: 048
     Dates: start: 20250623
  2. FILSPARI [Suspect]
     Active Substance: SPARSENTAN
     Route: 048
     Dates: start: 202507
  3. METOPROLOL [Concomitant]
     Active Substance: METOPROLOL
  4. TARPEYO [Concomitant]
     Active Substance: BUDESONIDE
  5. AMBIEN [Concomitant]
     Active Substance: ZOLPIDEM TARTRATE
  6. ALLOPURINOL [Concomitant]
     Active Substance: ALLOPURINOL
  7. COLCHICINE [Concomitant]
     Active Substance: COLCHICINE
  8. JARDIANCE [Concomitant]
     Active Substance: EMPAGLIFLOZIN
  9. ELIQUIS [Concomitant]
     Active Substance: APIXABAN
  10. PRILOSEC [Concomitant]
     Active Substance: OMEPRAZOLE MAGNESIUM
  11. CRESTOR [Concomitant]
     Active Substance: ROSUVASTATIN CALCIUM
  12. ZESTRIL [Concomitant]
     Active Substance: LISINOPRIL
  13. VIAGRA [Concomitant]
     Active Substance: SILDENAFIL CITRATE

REACTIONS (8)
  - Blood urea increased [Unknown]
  - Blood creatine increased [Unknown]
  - Epistaxis [Recovered/Resolved]
  - Glomerular filtration rate decreased [Unknown]
  - Urine ketone body present [Unknown]
  - Glucose urine present [Unknown]
  - Blood pressure decreased [Unknown]
  - Dizziness [Unknown]

NARRATIVE: CASE EVENT DATE: 20250623
